FAERS Safety Report 9280598 (Version 1)
Quarter: 2013Q2

REPORT INFORMATION
  Report Type: Spontaneous
  Country: US (occurrence: US)
  Receive Date: 20130509
  Receipt Date: 20130509
  Transmission Date: 20140414
  Serious: Yes (Other)
  Sender: FDA-Public Use
  Company Number: US-SANOFI-AVENTIS-2013SA046109

PATIENT
  Sex: Female

DRUGS (2)
  1. AUBAGIO [Suspect]
     Indication: MULTIPLE SCLEROSIS
     Dates: start: 20130410
  2. COUMADIN [Concomitant]

REACTIONS (4)
  - Deep vein thrombosis [Not Recovered/Not Resolved]
  - Haematochezia [Unknown]
  - Dizziness [Unknown]
  - Dizziness [Unknown]
